FAERS Safety Report 24355838 (Version 2)
Quarter: 2024Q4

REPORT INFORMATION
  Report Type: Spontaneous
  Country: US (occurrence: US)
  Receive Date: 20240924
  Receipt Date: 20241008
  Transmission Date: 20250114
  Serious: Yes (Death, Hospitalization)
  Sender: NOVARTIS
  Company Number: US-002147023-NVSC2024US189370

PATIENT
  Age: 66 Year
  Sex: Male
  Weight: 91 kg

DRUGS (2)
  1. PLUVICTO [Suspect]
     Active Substance: LUTETIUM LU-177 VIPIVOTIDE TETRAXETAN
     Indication: Prostate cancer metastatic
     Dosage: UNK
     Route: 042
     Dates: start: 20240701
  2. PLUVICTO [Suspect]
     Active Substance: LUTETIUM LU-177 VIPIVOTIDE TETRAXETAN
     Dosage: UNK
     Route: 042
     Dates: start: 20240816

REACTIONS (3)
  - Metastatic neoplasm [Fatal]
  - Abdominal pain [Unknown]
  - Anaemia [Unknown]

NARRATIVE: CASE EVENT DATE: 20240901
